FAERS Safety Report 21019965 (Version 3)
Quarter: 2023Q4

REPORT INFORMATION
  Report Type: Report from Study
  Country: US (occurrence: US)
  Receive Date: 20220628
  Receipt Date: 20231024
  Transmission Date: 20240109
  Serious: No
  Sender: FDA-Public Use
  Company Number: US-IDORSIA-000610-2022-US

PATIENT
  Age: 62 Year
  Sex: Female

DRUGS (3)
  1. QUVIVIQ [Suspect]
     Active Substance: DARIDOREXANT
     Indication: Product used for unknown indication
     Dosage: 25 MG, QD 30 MINS BEFORE GOING TO BED
     Route: 048
     Dates: start: 20220601, end: 20220603
  2. PROGESTERONE [Concomitant]
     Active Substance: PROGESTERONE
     Dosage: 100 MG
  3. NPH INSULIN [Concomitant]
     Active Substance: INSULIN BEEF
     Dosage: 2 UNK

REACTIONS (3)
  - Tremor [Recovered/Resolved]
  - Nervousness [Recovered/Resolved]
  - Drug ineffective [Unknown]

NARRATIVE: CASE EVENT DATE: 20220601
